FAERS Safety Report 4514986-8 (Version None)
Quarter: 2004Q4

REPORT INFORMATION
  Report Type: 
  Country: None (occurrence: None)
  Receive Date: 20041126
  Receipt Date: 20041116
  Transmission Date: 20050328
  Serious: Yes (Hospitalization, Other)
  Sender: FDA-Public Use
  Company Number: 2004094368

PATIENT
  Age: 31 Year
  Sex: Male

DRUGS (2)
  1. METRONIDAZOLE [Suspect]
     Indication: CROHN'S DISEASE
     Dosage: OVER THREE TIMES THE USUAL DOSE
  2. PREDNISONE TAB [Suspect]
     Indication: CROHN'S DISEASE
     Dosage: OVER THREE TIMES THE USUAL DOSE

REACTIONS (2)
  - ENCEPHALOPATHY [None]
  - OVERDOSE [None]
